FAERS Safety Report 5409902-0 (Version None)
Quarter: 2007Q3

REPORT INFORMATION
  Report Type: 
  Country: None (occurrence: None)
  Receive Date: 20070809
  Receipt Date: 20070730
  Transmission Date: 20080115
  Serious: Yes (Other)
  Sender: FDA-Public Use
  Company Number: BR-PFIZER INC-2007064339

PATIENT
  Sex: Male
  Weight: 130 kg

DRUGS (7)
  1. NEURONTIN [Suspect]
     Indication: PAIN IN EXTREMITY
     Route: 048
     Dates: start: 20070725, end: 20070728
  2. NEURONTIN [Suspect]
     Indication: INTERVERTEBRAL DISC PROTRUSION
  3. INSULIN [Concomitant]
     Indication: DIABETES MELLITUS
     Route: 030
  4. VASOPRIL /BRA/ [Concomitant]
     Indication: HYPERTENSION
     Route: 048
  5. ATENOLOL [Concomitant]
     Indication: HYPERTENSION
     Route: 048
  6. CARDIOVASCULAR SYSTEM DRUGS [Concomitant]
     Indication: CARDIAC DISORDER
  7. DILTIAZEM HYDROCHLORIDE [Concomitant]
     Indication: CARDIAC DISORDER

REACTIONS (2)
  - DRUG INEFFECTIVE FOR UNAPPROVED INDICATION [None]
  - INTERVERTEBRAL DISC PROTRUSION [None]
